FAERS Safety Report 18391102 (Version 2)
Quarter: 2020Q4

REPORT INFORMATION
  Report Type: Spontaneous
  Country: SE (occurrence: SE)
  Receive Date: 20201016
  Receipt Date: 20201127
  Transmission Date: 20210114
  Serious: Yes (Other)
  Sender: FDA-Public Use
  Company Number: NVSC2020SE275103

PATIENT
  Age: 64 Year
  Sex: Male

DRUGS (1)
  1. HYRIMOZ [Suspect]
     Active Substance: ADALIMUMAB-ADAZ
     Indication: PSORIASIS
     Dosage: 40 MG (EVERY OTHER WEEK)
     Route: 065
     Dates: start: 202001

REACTIONS (2)
  - Papilloma viral infection [Recovering/Resolving]
  - Penile cancer [Recovering/Resolving]

NARRATIVE: CASE EVENT DATE: 202001
